FAERS Safety Report 8465469-4 (Version None)
Quarter: 2012Q2

REPORT INFORMATION
  Report Type: 
  Country: None (occurrence: None)
  Receive Date: 20120626
  Receipt Date: 20120614
  Transmission Date: 20120825
  Serious: Yes (Hospitalization)
  Sender: FDA-Public Use
  Company Number: US-VIROPHARMA INCORPORATED-20120614CINRY3057

PATIENT
  Sex: Male

DRUGS (1)
  1. CINRYZE [Suspect]
     Indication: HEREDITARY ANGIOEDEMA
     Dosage: UNKNOWN
     Route: 065

REACTIONS (3)
  - GASTRIC ULCER HAEMORRHAGE [None]
  - VOMITING [None]
  - PANCREATITIS [None]
